FAERS Safety Report 11378608 (Version 1)
Quarter: 2015Q3

REPORT INFORMATION
  Report Type: Spontaneous
  Country: US (occurrence: None)
  Receive Date: 20150812
  Receipt Date: 20150812
  Transmission Date: 20151125
  Serious: Yes (Life-Threatening)
  Sender: FDA-Public Use
  Company Number: None

PATIENT
  Age: 56 Year
  Sex: Male
  Weight: 110.9 kg

DRUGS (1)
  1. IOPAMIDOL [Suspect]
     Active Substance: IOPAMIDOL
     Dates: start: 20150618

REACTIONS (5)
  - Lacrimation increased [None]
  - Eye swelling [None]
  - Anaphylactic reaction [None]
  - Throat irritation [None]
  - Erythema [None]

NARRATIVE: CASE EVENT DATE: 20150618
